FAERS Safety Report 6402240-9 (Version None)
Quarter: 2009Q4

REPORT INFORMATION
  Report Type: 
  Country: None (occurrence: None)
  Receive Date: 20091014
  Receipt Date: 20091014
  Transmission Date: 20100525
  Serious: No
  Sender: FDA-Public Use
  Company Number: None

PATIENT
  Sex: Male
  Weight: 70.3075 kg

DRUGS (1)
  1. ZOLPIDEM TARTRATE [Suspect]
     Dosage: 10MG ONE AT BEDTIME
     Dates: start: 20080512, end: 20091008

REACTIONS (4)
  - DRUG INEFFECTIVE [None]
  - MIDDLE INSOMNIA [None]
  - POOR QUALITY SLEEP [None]
  - PRODUCT SUBSTITUTION ISSUE [None]
